FAERS Safety Report 15690838 (Version 1)
Quarter: 2018Q4

REPORT INFORMATION
  Report Type: Spontaneous
  Country: US (occurrence: US)
  Receive Date: 20181205
  Receipt Date: 20181205
  Transmission Date: 20190205
  Serious: Yes (Other)
  Sender: FDA-Public Use
  Company Number: US-SAKK-2018SA325625AA

PATIENT
  Age: 54 Year
  Sex: Male

DRUGS (1)
  1. LOVENOX [Suspect]
     Active Substance: ENOXAPARIN SODIUM
     Indication: PULMONARY EMBOLISM
     Dosage: 90 MG, BID

REACTIONS (4)
  - Condition aggravated [Unknown]
  - Pulmonary mass [Unknown]
  - Pulmonary embolism [Unknown]
  - Drug ineffective [Unknown]
